FAERS Safety Report 5974457-9 (Version None)
Quarter: 2008Q4

REPORT INFORMATION
  Report Type: 
  Country: None (occurrence: None)
  Receive Date: 20081201
  Receipt Date: 20081120
  Transmission Date: 20090506
  Serious: Yes (Other)
  Sender: FDA-Public Use
  Company Number: JP-PFIZER INC-2008098653

PATIENT
  Sex: Female
  Weight: 35 kg

DRUGS (7)
  1. REVATIO [Suspect]
     Indication: PULMONARY ARTERIAL HYPERTENSION
     Route: 048
     Dates: start: 20081015
  2. FLOLAN [Concomitant]
     Route: 042
     Dates: start: 20001218
  3. WARFARIN SODIUM [Concomitant]
     Route: 048
     Dates: start: 20001207
  4. PARAMIDIN [Concomitant]
     Route: 048
     Dates: start: 20001207
  5. LASIX [Concomitant]
     Route: 048
  6. VASOLAN [Concomitant]
     Route: 048
  7. FAMOTIDINE [Concomitant]
     Route: 048
     Dates: start: 20081002, end: 20081114

REACTIONS (1)
  - HEPATIC FUNCTION ABNORMAL [None]
